FAERS Safety Report 7629045-5 (Version None)
Quarter: 2011Q3

REPORT INFORMATION
  Report Type: 
  Country: None (occurrence: None)
  Receive Date: 20110714
  Receipt Date: 20110708
  Transmission Date: 20111222
  Serious: Yes (Life-Threatening, Hospitalization, Other)
  Sender: FDA-Public Use
  Company Number: 2011SP020462

PATIENT
  Age: 43 Year
  Sex: Female

DRUGS (3)
  1. SAPHRIS [Suspect]
     Indication: PRODUCT USED FOR UNKNOWN INDICATION
     Dosage: 5 MG;HS;SL
     Route: 060
     Dates: start: 20110422, end: 20110427
  2. EFFEXOR XR [Concomitant]
  3. WELLBUTRIN XL [Concomitant]

REACTIONS (10)
  - PARANOIA [None]
  - RESTLESSNESS [None]
  - CONFUSIONAL STATE [None]
  - TACHYPHRENIA [None]
  - INSOMNIA [None]
  - EMOTIONAL DISTRESS [None]
  - MANIA [None]
  - AGITATION [None]
  - PRESSURE OF SPEECH [None]
  - SUICIDAL IDEATION [None]
